FAERS Safety Report 8268790-8 (Version None)
Quarter: 2012Q2

REPORT INFORMATION
  Report Type: 
  Country: None (occurrence: None)
  Receive Date: 20120409
  Receipt Date: 20120409
  Transmission Date: 20120825
  Serious: Yes (Life-Threatening)
  Sender: FDA-Public Use
  Company Number: None

PATIENT
  Age: 59 Year
  Sex: Female
  Weight: 83.914 kg

DRUGS (1)
  1. GABAPENTIN [Suspect]
     Indication: PAIN IN EXTREMITY
     Dosage: 300 MG
     Route: 048
     Dates: start: 20120310, end: 20120331

REACTIONS (1)
  - SUICIDAL BEHAVIOUR [None]
